FAERS Safety Report 8228910-8 (Version None)
Quarter: 2012Q1

REPORT INFORMATION
  Report Type: 
  Country: None (occurrence: None)
  Receive Date: 20120322
  Receipt Date: 20120316
  Transmission Date: 20120608
  Serious: Yes (Hospitalization, Other)
  Sender: FDA-Public Use
  Company Number: JP-PFIZER INC-2012037378

PATIENT
  Age: 39 Year
  Sex: Female

DRUGS (1)
  1. CLINDAMYCIN HCL [Suspect]
     Indication: INFECTION PROPHYLAXIS
     Dosage: 600 MG/DAY
     Route: 042
     Dates: start: 20120128, end: 20120210

REACTIONS (1)
  - HAEMOLYTIC ANAEMIA [None]
